FAERS Safety Report 18738391 (Version 1)
Quarter: 2021Q1

REPORT INFORMATION
  Report Type: Spontaneous
  Country: US (occurrence: US)
  Receive Date: 20210114
  Receipt Date: 20210114
  Transmission Date: 20210419
  Serious: Yes (Hospitalization)
  Sender: FDA-Public Use
  Company Number: US-TEVA-2021-US-1867358

PATIENT
  Age: 26 Year
  Sex: Female

DRUGS (1)
  1. BUPROPION. [Suspect]
     Active Substance: BUPROPION
     Indication: INTENTIONAL OVERDOSE
     Route: 065

REACTIONS (9)
  - Automatism [Unknown]
  - Nystagmus [Unknown]
  - Intestinal ischaemia [Recovering/Resolving]
  - Intentional overdose [Unknown]
  - Tachycardia [Unknown]
  - Tachypnoea [Unknown]
  - Mental status changes [Unknown]
  - Pneumatosis intestinalis [Recovering/Resolving]
  - Electrocardiogram QT prolonged [Recovered/Resolved]
